FAERS Safety Report 9778283 (Version 1)
Quarter: 2013Q4

REPORT INFORMATION
  Report Type: Spontaneous
  Country: US (occurrence: US)
  Receive Date: 20131223
  Receipt Date: 20131223
  Transmission Date: 20140711
  Serious: Yes (Death, Hospitalization)
  Sender: FDA-Public Use
  Company Number: US-JNJFOC-20131213070

PATIENT
  Sex: Female

DRUGS (1)
  1. XARELTO [Suspect]
     Indication: THROMBOSIS PROPHYLAXIS
     Route: 048
     Dates: end: 201310

REACTIONS (4)
  - Polycythaemia vera [Unknown]
  - Death [Fatal]
  - Gastrointestinal haemorrhage [Unknown]
  - Atrial fibrillation [Unknown]
